FAERS Safety Report 15665308 (Version 1)
Quarter: 2018Q4

REPORT INFORMATION
  Report Type: Spontaneous
  Country: US (occurrence: US)
  Receive Date: 20181128
  Receipt Date: 20181128
  Transmission Date: 20190205
  Serious: No
  Sender: FDA-Public Use
  Company Number: US-PERRIGO-18US008275

PATIENT
  Age: 27 Year
  Sex: Male
  Weight: 95.24 kg

DRUGS (2)
  1. LAMOTRIGINE. [Concomitant]
     Active Substance: LAMOTRIGINE
     Indication: PROPHYLAXIS
     Dosage: UNK
     Route: 065
  2. NICOTINE POLACRILEX [Suspect]
     Active Substance: NICOTINE
     Indication: SMOKING CESSATION THERAPY
     Dosage: 6 MG, EVERY 3 HOURS
     Route: 002
     Dates: start: 20180721, end: 20180724

REACTIONS (5)
  - Oral candidiasis [Recovered/Resolved]
  - Throat irritation [Recovered/Resolved]
  - Oral pain [Recovered/Resolved]
  - Overdose [Recovered/Resolved]
  - Stomatitis [Recovered/Resolved]

NARRATIVE: CASE EVENT DATE: 20180721
